FAERS Safety Report 5244375-2 (Version None)
Quarter: 2007Q1

REPORT INFORMATION
  Report Type: 
  Country: None (occurrence: None)
  Receive Date: 20070222
  Receipt Date: 20070220
  Transmission Date: 20070707
  Serious: Yes (Life-Threatening, Hospitalization)
  Sender: FDA-Public Use
  Company Number: PH-GILEAD-2007-0011168

PATIENT
  Age: 51 Year
  Sex: Male

DRUGS (1)
  1. HEPSERA [Suspect]
     Indication: DRUG USE FOR UNKNOWN INDICATION
     Dates: start: 20060828, end: 20070106

REACTIONS (2)
  - HEART RATE IRREGULAR [None]
  - VENTRICULAR EXTRASYSTOLES [None]
